FAERS Safety Report 16890257 (Version 7)
Quarter: 2020Q2

REPORT INFORMATION
  Report Type: Report from Study
  Country: FI (occurrence: FI)
  Receive Date: 20191007
  Receipt Date: 20200402
  Transmission Date: 20200713
  Serious: Yes (Hospitalization)
  Sender: FDA-Public Use
  Company Number: FI-ROCHE-2428793

PATIENT
  Age: 69 Year
  Sex: Female
  Weight: 51 kg

DRUGS (26)
  1. BEVACIZUMAB. [Suspect]
     Active Substance: BEVACIZUMAB
     Indication: MALIGNANT PERITONEAL NEOPLASM
     Dosage: DOSE OF LAST BEVACIZUMAB ADMINISTERED PRIOR TO AE ONSET 730 MG ON 10/SEP/2019
     Route: 042
     Dates: start: 20190227
  2. SOMAC [Concomitant]
     Active Substance: PANTOPRAZOLE SODIUM
     Route: 065
     Dates: start: 20190206
  3. PARACETAMOL [Concomitant]
     Active Substance: ACETAMINOPHEN
     Dosage: PREMEDICATION FOR EYE OPERATION
     Route: 065
     Dates: start: 20191021, end: 20191021
  4. PROPOFOL. [Concomitant]
     Active Substance: PROPOFOL
     Dosage: ANESTHETIC FOR EYE OPERATION
     Route: 065
     Dates: start: 20191021, end: 20191021
  5. PACLITAXEL. [Suspect]
     Active Substance: PACLITAXEL
     Indication: MALIGNANT PERITONEAL NEOPLASM
     Dosage: DOSE OF LAST PACLITAXEL ADMINISTERED PRIOR TO AE ONSET 261 MG ON 29/MAY/2019
     Route: 042
     Dates: start: 20190207
  6. CARBOPLATIN. [Suspect]
     Active Substance: CARBOPLATIN
     Indication: MALIGNANT PERITONEAL NEOPLASM
     Dosage: DOSE OF LAST CARBOPLATIN ADMINISTERED PRIOR TO AE ONSET 541 MG ON 29/MAY/2019?STANDARD DOSE 6 MILLIG
     Route: 042
     Dates: start: 20190207
  7. DIAZEPAM. [Concomitant]
     Active Substance: DIAZEPAM
     Indication: PREMEDICATION
     Dosage: PREMEDICATION FOR EYE OPERATION
     Route: 065
     Dates: start: 20191021, end: 20191021
  8. GLYCOSTIGMIN [Concomitant]
     Dosage: PREMEDICATION FOR EYE OPERATION
     Route: 065
     Dates: start: 20191021, end: 20191021
  9. IMMUNOGLOBULINES HUMAINES CNTS [Concomitant]
     Active Substance: HUMAN IMMUNOGLOBULIN G
     Route: 065
     Dates: start: 20200203, end: 20200203
  10. MINISUN [Concomitant]
     Active Substance: CHOLECALCIFEROL
  11. BURANA [Concomitant]
     Active Substance: IBUPROFEN
     Indication: PAIN
  12. PEGORION [Concomitant]
     Active Substance: POLYETHYLENE GLYCOL 4000
     Indication: CONSTIPATION
     Route: 065
     Dates: start: 20190206, end: 20190910
  13. OFTAGEL [Concomitant]
     Active Substance: CARBOMER
     Indication: DRY EYE
     Route: 065
     Dates: start: 20190830
  14. ATEZOLIZUMAB. [Suspect]
     Active Substance: ATEZOLIZUMAB
     Indication: MALIGNANT PERITONEAL NEOPLASM
     Dosage: DATE OF MOST RECENT DOSE OF ATEZOLIZUMAB PRIOR TO AE ONSET 18 JUN 2019: 1200 MG
     Route: 042
     Dates: start: 20190207
  15. CARDACE [RAMIPRIL] [Concomitant]
     Indication: HYPERTENSION
     Route: 065
     Dates: start: 20190529
  16. TYRAZOL [Concomitant]
     Active Substance: CARBIMAZOLE
     Indication: HYPOTHYROIDISM
     Route: 065
     Dates: start: 20190712
  17. ROCURONIUM [Concomitant]
     Active Substance: ROCURONIUM BROMIDE
     Dosage: PREMEDICATION FOR EYE OPERATION
     Route: 065
     Dates: start: 20191021, end: 20191021
  18. ORADEXON [DEXAMETHASONE] [Concomitant]
     Dosage: PREMEDICATION FOR EYE OPERATION
     Route: 042
     Dates: start: 20191021, end: 20191021
  19. PANADOL [Concomitant]
     Active Substance: ACETAMINOPHEN
     Indication: PAIN
  20. AMLODIPINE [Concomitant]
     Active Substance: AMLODIPINE BESYLATE
     Indication: HYPERTENSION
     Route: 065
     Dates: start: 20190712
  21. ADRENALINE;LIDOCAINE [Concomitant]
     Indication: PREMEDICATION
     Dosage: PREMEDICATION FOR EYE OPERATION
     Route: 065
     Dates: start: 20191021, end: 20191021
  22. ONDANSETRON [Concomitant]
     Active Substance: ONDANSETRON
     Dosage: PREMEDICATION FOR EYE OPERATION
     Route: 065
     Dates: start: 20191021, end: 20191021
  23. PROPOFOL. [Concomitant]
     Active Substance: PROPOFOL
     Dosage: ANESTHETIC FOR EYE OPERATION
     Route: 065
     Dates: start: 20191021, end: 20191021
  24. VISCOTEARS [Concomitant]
     Active Substance: CARBOMER
     Route: 065
     Dates: start: 20190712
  25. ZINACEF [CEFUROXIME] [Concomitant]
     Indication: PREMEDICATION
     Dosage: PREMEDICATION FOR EYE OPERATION
     Route: 065
     Dates: start: 20191021, end: 20191021
  26. FENTANYL. [Concomitant]
     Active Substance: FENTANYL
     Dosage: MEDICATION FOR EYE OPERATION
     Route: 065
     Dates: start: 20191021, end: 20191021

REACTIONS (1)
  - Optic neuropathy [Not Recovered/Not Resolved]

NARRATIVE: CASE EVENT DATE: 20190917
